FAERS Safety Report 8381213-3 (Version None)
Quarter: 2012Q2

REPORT INFORMATION
  Report Type: 
  Country: None (occurrence: None)
  Receive Date: 20120522
  Receipt Date: 20120508
  Transmission Date: 20120825
  Serious: Yes (Hospitalization)
  Sender: FDA-Public Use
  Company Number: FK201201365

PATIENT
  Age: 70 Year
  Sex: Female

DRUGS (3)
  1. PEMETREXED [Concomitant]
  2. CISPLATIN [Suspect]
     Indication: LUNG CARCINOMA CELL TYPE UNSPECIFIED RECURRENT
     Dosage: 75 MG/M2
  3. BEVACIZUMAB (BEVACIZUMAB) [Concomitant]

REACTIONS (6)
  - RENAL SALT-WASTING SYNDROME [None]
  - CONVULSION [None]
  - ASTHENIA [None]
  - DECREASED APPETITE [None]
  - RENAL FAILURE ACUTE [None]
  - DEPRESSED LEVEL OF CONSCIOUSNESS [None]
